FAERS Safety Report 25011370 (Version 2)
Quarter: 2025Q1

REPORT INFORMATION
  Report Type: Report from Study
  Country: US (occurrence: US)
  Receive Date: 20250226
  Receipt Date: 20250319
  Transmission Date: 20250408
  Serious: Yes (Other)
  Sender: TAKEDA
  Company Number: US-TAKEDA-2024TUS085528

PATIENT
  Age: 68 Year
  Sex: Female
  Weight: 51.7 kg

DRUGS (11)
  1. GLASSIA [Suspect]
     Active Substance: .ALPHA.1-PROTEINASE INHIBITOR HUMAN
     Indication: Alpha-1 antitrypsin deficiency
     Dosage: UNK UNK, 1/WEEK
     Dates: start: 20240806
  2. GLASSIA [Suspect]
     Active Substance: .ALPHA.1-PROTEINASE INHIBITOR HUMAN
  3. GLASSIA [Suspect]
     Active Substance: .ALPHA.1-PROTEINASE INHIBITOR HUMAN
     Dosage: 60 MILLIGRAM/KILOGRAM, 1/WEEK
  4. ALENDRONATE [Suspect]
     Active Substance: ALENDRONATE SODIUM
     Indication: Osteoporosis
     Dosage: UNK UNK, 1/WEEK
  5. EPINEPHRINE [Concomitant]
     Active Substance: EPINEPHRINE
  6. TYLENOL [Concomitant]
     Active Substance: ACETAMINOPHEN
  7. SODIUM CHLORIDE [Concomitant]
     Active Substance: SODIUM CHLORIDE
  8. DIPHENHYDRAMINE HYDROCHLORIDE [Concomitant]
     Active Substance: DIPHENHYDRAMINE HYDROCHLORIDE
  9. VITAMIN D3 [Concomitant]
     Active Substance: CHOLECALCIFEROL
  10. TRELEGY ELLIPTA [Concomitant]
     Active Substance: FLUTICASONE FUROATE\UMECLIDINIUM BROMIDE\VILANTEROL TRIFENATATE
  11. ALBUTEROL SULFATE [Concomitant]
     Active Substance: ALBUTEROL SULFATE

REACTIONS (13)
  - Pulmonary sarcoidosis [Unknown]
  - Mucosal discolouration [Unknown]
  - Cystitis [Unknown]
  - Product dose omission issue [Unknown]
  - Pyrexia [Unknown]
  - Osteoporosis [Unknown]
  - Post procedural infection [Unknown]
  - Chest discomfort [Unknown]
  - Feeling abnormal [Unknown]
  - Rhinorrhoea [Unknown]
  - Fatigue [Unknown]
  - Cough [Unknown]
  - Sinusitis [Unknown]

NARRATIVE: CASE EVENT DATE: 20240818
